FAERS Safety Report 4483711-1 (Version None)
Quarter: 2004Q4

REPORT INFORMATION
  Report Type: 
  Country: None (occurrence: None)
  Receive Date: 20041022
  Receipt Date: 20041022
  Transmission Date: 20050328
  Serious: Yes (Life-Threatening)
  Sender: FDA-Public Use
  Company Number: None

PATIENT
  Age: 78 Year
  Sex: Female
  Weight: 70.3075 kg

DRUGS (1)
  1. ZOLOFT [Suspect]
     Indication: ANXIETY
     Dosage: TOOK ONE 25 MG TAB AT 9:00 EVERY MORNIN
     Dates: start: 20040618, end: 20040620

REACTIONS (6)
  - BALANCE DISORDER [None]
  - CHEST DISCOMFORT [None]
  - DYSPEPSIA [None]
  - HALLUCINATION, AUDITORY [None]
  - HEADACHE [None]
  - INSOMNIA [None]
